FAERS Safety Report 9165577 (Version 1)
Quarter: 2013Q1

REPORT INFORMATION
  Report Type: Spontaneous
  Country: GB (occurrence: GB)
  Receive Date: 20130315
  Receipt Date: 20130315
  Transmission Date: 20140127
  Serious: Yes (Disabling)
  Sender: FDA-Public Use
  Company Number: GB-BANPHARM-20130936

PATIENT
  Age: 39 Year
  Sex: Female
  Weight: 69.85 kg

DRUGS (2)
  1. IBUPROFEN UNKNOWN PRODUCT [Suspect]
  2. CITALOPRAM [Suspect]
     Indication: DEPRESSION
     Dosage: 20 MG, THEN DECREASED TO 10 MG, QD,
     Dates: start: 20130131, end: 20130210

REACTIONS (3)
  - Anaemia [Unknown]
  - Vaginal haemorrhage [Recovered/Resolved]
  - Drug interaction [Unknown]
